FAERS Safety Report 21766164 (Version 1)
Quarter: 2022Q4

REPORT INFORMATION
  Report Type: Spontaneous
  Country: FR (occurrence: None)
  Receive Date: 20221222
  Receipt Date: 20221222
  Transmission Date: 20230113
  Serious: Yes (Hospitalization)
  Sender: FDA-Public Use
  Company Number: 2022A406124

PATIENT
  Age: 74 Year
  Sex: Male
  Weight: 95 kg

DRUGS (4)
  1. TICAGRELOR [Suspect]
     Active Substance: TICAGRELOR
     Route: 048
     Dates: start: 20221013
  2. KARDEGIC [Suspect]
     Active Substance: ASPIRIN DL-LYSINE
     Route: 048
     Dates: start: 20221013
  3. LOVENOX [Suspect]
     Active Substance: ENOXAPARIN SODIUM
     Indication: Angioplasty
     Dosage: 2 DF DAILY, CURATIVE ANTICOAGULATION
     Route: 058
     Dates: start: 20221013, end: 20221015
  4. LOVENOX [Suspect]
     Active Substance: ENOXAPARIN SODIUM
     Indication: Angioplasty
     Dosage: 4.000 IU ANTI-XA/0.4 ML, 1 DF DAILY, PREVENTIVE ANTICOAGULATION
     Route: 058
     Dates: start: 20221016

REACTIONS (2)
  - Anaemia [Recovered/Resolved]
  - Haematoma muscle [Recovering/Resolving]

NARRATIVE: CASE EVENT DATE: 20221001
